FAERS Safety Report 21061841 (Version 2)
Quarter: 2022Q3

REPORT INFORMATION
  Report Type: Spontaneous
  Country: US (occurrence: US)
  Receive Date: 20220710
  Receipt Date: 20220718
  Transmission Date: 20221027
  Serious: No
  Sender: FDA-Public Use
  Company Number: US-SA-SAC20220701000846

PATIENT
  Sex: Male

DRUGS (4)
  1. DUPIXENT [Suspect]
     Active Substance: DUPILUMAB
     Indication: Dermatitis atopic
     Dosage: 300 MG, QOW
     Route: 058
     Dates: start: 20211009
  2. FLUCONAZOLE [Concomitant]
     Active Substance: FLUCONAZOLE
  3. LISINOPRIL [Concomitant]
     Active Substance: LISINOPRIL
  4. TACROLIMUS [Concomitant]
     Active Substance: TACROLIMUS

REACTIONS (3)
  - Sleep disorder [Unknown]
  - Pruritus [Unknown]
  - Dermatitis atopic [Unknown]
